FAERS Safety Report 22065988 (Version 1)
Quarter: 2023Q1

REPORT INFORMATION
  Report Type: Report from Study
  Country: CN (occurrence: CN)
  Receive Date: 20230306
  Receipt Date: 20230306
  Transmission Date: 20230417
  Serious: Yes (Life-Threatening, Hospitalization)
  Sender: FDA-Public Use
  Company Number: CN-ELI_LILLY_AND_COMPANY-CN202109006312

PATIENT
  Age: 45 Year
  Sex: Female
  Weight: 49.8 kg

DRUGS (13)
  1. GEMCITABINE HYDROCHLORIDE [Suspect]
     Active Substance: GEMCITABINE HYDROCHLORIDE
     Indication: Triple negative breast cancer
     Dosage: 1000 MG/M2, CYCLICAL
     Route: 042
     Dates: start: 20210818
  2. GEMCITABINE HYDROCHLORIDE [Suspect]
     Active Substance: GEMCITABINE HYDROCHLORIDE
     Dosage: 716 MG/M2, CYCLICAL
     Route: 042
     Dates: end: 20210825
  3. ATEZOLIZUMAB [Concomitant]
     Active Substance: ATEZOLIZUMAB
     Indication: Triple negative breast cancer
     Dosage: UNK, EVERY THREE WEEKS
     Route: 042
     Dates: start: 20210818
  4. ATEZOLIZUMAB [Concomitant]
     Active Substance: ATEZOLIZUMAB
     Dosage: UNK, EVERY THREE WEEKS
     Route: 042
     Dates: start: 20210818
  5. ATEZOLIZUMAB [Concomitant]
     Active Substance: ATEZOLIZUMAB
     Dosage: UNK, EVERY THREE WEEKS
     Route: 042
     Dates: start: 20210818
  6. CARBOPLATIN [Concomitant]
     Active Substance: CARBOPLATIN
     Indication: Triple negative breast cancer
     Dosage: 209 MG, CYCLICAL
     Route: 042
     Dates: start: 20210818, end: 20210818
  7. PALONOSETRON HYDROCHLORIDE [Concomitant]
     Active Substance: PALONOSETRON HYDROCHLORIDE
     Indication: Prophylaxis
     Dosage: UNK, UNKNOWN
     Route: 065
     Dates: start: 20210818, end: 20210818
  8. PALONOSETRON HYDROCHLORIDE [Concomitant]
     Active Substance: PALONOSETRON HYDROCHLORIDE
     Dosage: UNK, UNKNOWN
     Route: 065
     Dates: start: 20210825, end: 20210825
  9. PALONOSETRON HYDROCHLORIDE [Concomitant]
     Active Substance: PALONOSETRON HYDROCHLORIDE
     Dosage: UNK, UNKNOWN
     Route: 065
     Dates: start: 20210907, end: 20210907
  10. PALONOSETRON HYDROCHLORIDE [Concomitant]
     Active Substance: PALONOSETRON HYDROCHLORIDE
     Dosage: UNK, UNKNOWN
     Route: 065
     Dates: start: 20210914, end: 20210914
  11. ZOLEDRONIC ACID [Concomitant]
     Active Substance: ZOLEDRONIC ACID
     Indication: Prophylaxis
     Dosage: UNK UNK, UNKNOWN
     Route: 065
     Dates: start: 20210818, end: 20210818
  12. ZOLEDRONIC ACID [Concomitant]
     Active Substance: ZOLEDRONIC ACID
     Dosage: UNK UNK, UNKNOWN
     Route: 065
     Dates: start: 20210914, end: 20210914
  13. HERBALS\DIAMMONIUM GLYCYRRHIZINATE [Concomitant]
     Active Substance: HERBALS\DIAMMONIUM GLYCYRRHIZINATE
     Indication: Product used for unknown indication
     Dosage: UNK UNK, UNKNOWN
     Route: 065
     Dates: start: 20210819, end: 20210819

REACTIONS (2)
  - Platelet count decreased [Recovered/Resolved]
  - Platelet count decreased [Not Recovered/Not Resolved]

NARRATIVE: CASE EVENT DATE: 20210830
